FAERS Safety Report 4838873-0 (Version None)
Quarter: 2005Q4

REPORT INFORMATION
  Report Type: 
  Country: None (occurrence: None)
  Receive Date: 20051123
  Receipt Date: 20051123
  Transmission Date: 20060501
  Serious: Yes (Life-Threatening, Hospitalization)
  Sender: FDA-Public Use
  Company Number: None

PATIENT
  Sex: Male
  Weight: 72 kg

DRUGS (3)
  1. PEGASPARAGINASE [Suspect]
     Indication: ACUTE LYMPHOCYTIC LEUKAEMIA
     Dosage: 2500MG/METER SQUARED; 4750 IU   IM
     Route: 030
     Dates: start: 20051007, end: 20051007
  2. VINCRISTINE [Concomitant]
  3. METHOTREXATE [Concomitant]

REACTIONS (6)
  - ASCITES [None]
  - BLOOD GLUCOSE INCREASED [None]
  - NEUTROPHIL COUNT DECREASED [None]
  - PANCREATIC ENLARGEMENT [None]
  - PANCREATITIS NECROTISING [None]
  - WHITE BLOOD CELL COUNT DECREASED [None]
